FAERS Safety Report 13105319 (Version 3)
Quarter: 2017Q2

REPORT INFORMATION
  Report Type: Spontaneous
  Country: US (occurrence: US)
  Receive Date: 20170111
  Receipt Date: 20170414
  Transmission Date: 20170830
  Serious: No
  Sender: FDA-Public Use
  Company Number: US-PFIZER INC-2017011643

PATIENT
  Age: 38 Year
  Sex: Female
  Weight: 88 kg

DRUGS (2)
  1. INFANTS ADVIL CONCENTRATED DROPS [Suspect]
     Active Substance: IBUPROFEN
     Indication: TOOTH DISORDER
     Dosage: 5 ML, EVERY 4 HRS
  2. HYDROCHLOROTHIAZIDE W/TRIAMTERENE [Concomitant]
     Active Substance: HYDROCHLOROTHIAZIDE\TRIAMTERENE
     Indication: HYPERTENSION
     Dosage: 70/50 ONCE DAILY

REACTIONS (1)
  - Laceration [Recovered/Resolved]

NARRATIVE: CASE EVENT DATE: 20170109
